FAERS Safety Report 11390446 (Version 1)
Quarter: 2015Q3

REPORT INFORMATION
  Report Type: Spontaneous
  Country: US (occurrence: US)
  Receive Date: 20150818
  Receipt Date: 20150818
  Transmission Date: 20151125
  Serious: No
  Sender: FDA-Public Use
  Company Number: US-ROCHE-1400004

PATIENT
  Sex: Male

DRUGS (17)
  1. ASPIRIN. [Concomitant]
     Active Substance: ASPIRIN
  2. SYMBICORT [Concomitant]
     Active Substance: BUDESONIDE\FORMOTEROL FUMARATE DIHYDRATE
  3. SERTRALINE [Concomitant]
     Active Substance: SERTRALINE HYDROCHLORIDE
  4. PAXIL [Concomitant]
     Active Substance: PAROXETINE HYDROCHLORIDE
  5. HYDROXYZINE [Concomitant]
     Active Substance: HYDROXYZINE\HYDROXYZINE HYDROCHLORIDE
  6. LISINOPRIL. [Concomitant]
     Active Substance: LISINOPRIL
  7. FAMOTIDINE. [Concomitant]
     Active Substance: FAMOTIDINE
  8. RIBASPHERE [Suspect]
     Active Substance: RIBAVIRIN
     Indication: CHRONIC HEPATITIS C
     Dosage: 600-800 MG
     Route: 048
     Dates: start: 20140326
  9. VENTOLIN [Concomitant]
     Active Substance: ALBUTEROL SULFATE
  10. AMLODIPINE [Concomitant]
     Active Substance: AMLODIPINE BESYLATE
  11. HYDROCHLOROTHIAZIDE. [Concomitant]
     Active Substance: HYDROCHLOROTHIAZIDE
  12. ALBUTEROL. [Concomitant]
     Active Substance: ALBUTEROL
  13. GABAPENTIN. [Concomitant]
     Active Substance: GABAPENTIN
  14. OMEPRAZOLE. [Concomitant]
     Active Substance: OMEPRAZOLE
  15. PEGASYS [Suspect]
     Active Substance: PEGINTERFERON ALFA-2A
     Indication: CHRONIC HEPATITIS C
     Dosage: 5ML SYRN
     Route: 058
     Dates: start: 20140326
  16. SOVALDI [Suspect]
     Active Substance: SOFOSBUVIR
     Indication: CHRONIC HEPATITIS C
     Route: 048
     Dates: start: 20140326
  17. PANTOPRAZOLE [Concomitant]
     Active Substance: PANTOPRAZOLE SODIUM

REACTIONS (1)
  - Dyspnoea [Not Recovered/Not Resolved]
